FAERS Safety Report 20280804 (Version 2)
Quarter: 2024Q4

REPORT INFORMATION
  Report Type: Spontaneous
  Country: GR (occurrence: GR)
  Receive Date: 20220103
  Receipt Date: 20241029
  Transmission Date: 20250114
  Serious: Yes (Hospitalization, Other)
  Sender: ACCORD
  Company Number: GR-Accord-248834

PATIENT
  Age: 83 Year
  Sex: Male

DRUGS (2)
  1. CAPECITABINE [Interacting]
     Active Substance: CAPECITABINE
     Indication: Colorectal adenocarcinoma
     Dosage: 1250 MG X 2 PER DAY 2.5G/DAY
     Dates: start: 202011
  2. WARFARIN [Interacting]
     Active Substance: WARFARIN
     Indication: Atrial fibrillation

REACTIONS (4)
  - Acute kidney injury [Not Recovered/Not Resolved]
  - Abdominal wall haematoma [Recovered/Resolved]
  - Labelled drug-disease interaction issue [Unknown]
  - Labelled drug-drug interaction issue [Unknown]
